FAERS Safety Report 8982903 (Version 1)
Quarter: 2012Q4

REPORT INFORMATION
  Report Type: Report from Study
  Country: ES (occurrence: ES)
  Receive Date: 20121221
  Receipt Date: 20121221
  Transmission Date: 20130627
  Serious: Yes (Hospitalization)
  Sender: FDA-Public Use
  Company Number: ES-BAXTER-2012BAX027430

PATIENT
  Age: 51 Year
  Sex: Male
  Weight: 95 kg

DRUGS (3)
  1. GENOXAL [Suspect]
     Indication: CHRONIC LYMPHOCYTIC LEUKEMIA
     Route: 042
     Dates: start: 20090422
  2. RITUXIMAB [Suspect]
     Indication: CHRONIC LYMPHOCYTIC LEUKEMIA
     Route: 042
     Dates: start: 20090421
  3. FLUDARABINE [Suspect]
     Indication: CHRONIC LYMPHOCYTIC LEUKEMIA
     Route: 042
     Dates: start: 20090422

REACTIONS (4)
  - Pneumonia [Recovered/Resolved]
  - Meningitis [Recovered/Resolved]
  - Anaemia [None]
  - Neutropenia [None]
